FAERS Safety Report 8988804 (Version 1)
Quarter: 2012Q4

REPORT INFORMATION
  Report Type: Spontaneous
  Country: US (occurrence: None)
  Receive Date: 20121218
  Receipt Date: 20121218
  Transmission Date: 20130627
  Serious: Yes (Other)
  Sender: FDA-Public Use
  Company Number: 2012P1066550

PATIENT
  Age: 50 Year
  Sex: Female

DRUGS (2)
  1. INFUMORPH [Suspect]
     Indication: LOW BACK PAIN
  2. INFUMORPH [Suspect]
     Indication: SPINAL PAIN

REACTIONS (3)
  - Drug ineffective [None]
  - Medical device complication [None]
  - Device issue [None]
